FAERS Safety Report 11499513 (Version 3)
Quarter: 2015Q4

REPORT INFORMATION
  Report Type: Spontaneous
  Country: US (occurrence: US)
  Receive Date: 20150914
  Receipt Date: 20151112
  Transmission Date: 20160304
  Serious: Yes (Hospitalization)
  Sender: FDA-Public Use
  Company Number: US-PFIZER INC-2015296737

PATIENT
  Age: 75 Year
  Sex: Female
  Weight: 61 kg

DRUGS (3)
  1. INLYTA [Suspect]
     Active Substance: AXITINIB
     Dosage: 5 MG, 2X/DAY
     Route: 048
     Dates: start: 20150323, end: 20150501
  2. INLYTA [Suspect]
     Active Substance: AXITINIB
     Indication: RENAL CANCER METASTATIC
     Dosage: 5 MG, 1X/DAY
     Route: 048
     Dates: start: 20140729, end: 20140731
  3. INLYTA [Suspect]
     Active Substance: AXITINIB
     Dosage: 5 MG, 1X/DAY
     Route: 048
     Dates: start: 20140908, end: 20141105

REACTIONS (6)
  - Disease progression [Unknown]
  - Cardiac failure [Unknown]
  - Cardiac disorder [Unknown]
  - Chest pain [Recovered/Resolved]
  - Dyspnoea [Not Recovered/Not Resolved]
  - Renal cancer metastatic [Unknown]

NARRATIVE: CASE EVENT DATE: 20140731
